FAERS Safety Report 4486444-0 (Version None)
Quarter: 2004Q4

REPORT INFORMATION
  Report Type: 
  Country: None (occurrence: None)
  Receive Date: 20041026
  Receipt Date: 20041026
  Transmission Date: 20050328
  Serious: Yes (Hospitalization)
  Sender: FDA-Public Use
  Company Number: None

PATIENT
  Age: 76 Year
  Sex: Female
  Weight: 60.3284 kg

DRUGS (9)
  1. GLEEVEC [Suspect]
     Indication: BILE DUCT CANCER
     Dosage: 300 MG BIDX4DAYS/WK ORAL
     Route: 048
     Dates: start: 20041019, end: 20041022
  2. TAXOL [Suspect]
     Dosage: TAXOL QWKX3 IN 4WKS INTRAVENOU
     Route: 042
     Dates: start: 20041021, end: 20041021
  3. OXYCONTIN [Concomitant]
  4. LASIX [Concomitant]
  5. ZANTAC [Concomitant]
  6. REGLAN [Concomitant]
  7. LOVENOX [Concomitant]
  8. K-LOR [Concomitant]
  9. ASPIRIN [Concomitant]

REACTIONS (3)
  - HAEMATEMESIS [None]
  - NAUSEA [None]
  - VOMITING [None]
